FAERS Safety Report 23276622 (Version 1)
Quarter: 2023Q4

REPORT INFORMATION
  Report Type: Spontaneous
  Country: US (occurrence: US)
  Receive Date: 20231208
  Receipt Date: 20231208
  Transmission Date: 20240110
  Serious: Yes (Other)
  Sender: FDA-Public Use
  Company Number: US-BAUSCH-BL-2023-018078

PATIENT
  Age: 16 Year
  Sex: Male

DRUGS (3)
  1. XENAZINE [Suspect]
     Active Substance: TETRABENAZINE
     Indication: Stiff person syndrome
     Dosage: UNKNOWN DOSE
     Route: 065
  2. XENAZINE [Suspect]
     Active Substance: TETRABENAZINE
     Indication: Off label use
     Dosage: DOSE INCREASED
     Route: 048
  3. XENAZINE [Suspect]
     Active Substance: TETRABENAZINE
     Dosage: DOSE DECREASED
     Route: 048

REACTIONS (3)
  - Near death experience [Unknown]
  - Product prescribing issue [Unknown]
  - Off label use [Unknown]
